FAERS Safety Report 7811377 (Version 4)
Quarter: 2012Q4

REPORT INFORMATION
  Report Type: 
  Country: US (occurrence: US)
  Receive Date: 20110214
  Receipt Date: 20121112
  Transmission Date: 20130627
  Serious: Yes (Hospitalization, Other)
  Sender: FDA-Public Use
  Company Number: US-ASTRAZENECA-2011SE06806

PATIENT
  Age: 56 Year
  Sex: Female

DRUGS (1)
  1. NEXIUM [Suspect]
     Route: 048

REACTIONS (6)
  - Drug dose omission [Unknown]
  - Cataract [Unknown]
  - Visual impairment [Unknown]
  - Cardiac disorder [Unknown]
  - Chest pain [Unknown]
  - Malaise [Unknown]
